FAERS Safety Report 20389771 (Version 1)
Quarter: 2022Q1

REPORT INFORMATION
  Report Type: Spontaneous
  Country: US (occurrence: US)
  Receive Date: 20220128
  Receipt Date: 20220128
  Transmission Date: 20220424
  Serious: No
  Sender: FDA-Public Use
  Company Number: US-ALLERGAN-2118423US

PATIENT
  Age: 4 Decade
  Sex: Female

DRUGS (2)
  1. BOTOX COSMETIC [Suspect]
     Active Substance: ONABOTULINUMTOXINA
     Indication: Skin wrinkling
     Dosage: 50 UNITS, SINGLE
     Dates: start: 20210506, end: 20210506
  2. BOTOX COSMETIC [Suspect]
     Active Substance: ONABOTULINUMTOXINA
     Dosage: 50 UNITS, SINGLE
     Dates: start: 20210429, end: 20210429

REACTIONS (3)
  - COVID-19 [Unknown]
  - Multiple use of single-use product [Unknown]
  - Drug ineffective [Unknown]
